FAERS Safety Report 8965789 (Version 1)
Quarter: 2012Q4

REPORT INFORMATION
  Report Type: Spontaneous
  Country: US (occurrence: None)
  Receive Date: 20121213
  Receipt Date: 20121213
  Transmission Date: 20130627
  Serious: Yes (Life-Threatening, Hospitalization)
  Sender: FDA-Public Use
  Company Number: None

PATIENT
  Age: 55 Year
  Sex: Female
  Weight: 96.62 kg

DRUGS (1)
  1. REMICADE [Suspect]
     Route: 042
     Dates: start: 20120310

REACTIONS (6)
  - Septic shock [None]
  - Hypertension [None]
  - Infusion related reaction [None]
  - Blister [None]
  - Cellulitis [None]
  - Panniculitis [None]
